FAERS Safety Report 17980179 (Version 2)
Quarter: 2021Q2

REPORT INFORMATION
  Report Type: Spontaneous
  Country: US (occurrence: US)
  Receive Date: 20200703
  Receipt Date: 20210526
  Transmission Date: 20210717
  Serious: Yes (Other)
  Sender: FDA-Public Use
  Company Number: NVSC2020US187740

PATIENT
  Sex: Male

DRUGS (1)
  1. VOTRIENT [Suspect]
     Active Substance: PAZOPANIB HYDROCHLORIDE
     Indication: SOFT TISSUE SARCOMA
     Dosage: 800 MG, QD
     Route: 048
     Dates: start: 20200121, end: 202105

REACTIONS (4)
  - Metastasis [Unknown]
  - Fluid retention [Unknown]
  - Incision site discharge [Unknown]
  - Impaired healing [Unknown]
